FAERS Safety Report 9013643 (Version 1)
Quarter: 2013Q1

REPORT INFORMATION
  Report Type: Spontaneous
  Country: US (occurrence: None)
  Receive Date: 20130109
  Receipt Date: 20130109
  Transmission Date: 20140127
  Serious: Yes (Hospitalization)
  Sender: FDA-Public Use
  Company Number: None

PATIENT
  Age: 67 Year
  Sex: Male
  Weight: 106.1 kg

DRUGS (1)
  1. DOXORUBICIN [Suspect]
     Indication: NEOPLASM MALIGNANT
     Dosage: OTHER
     Route: 042
     Dates: start: 20120928, end: 20121017

REACTIONS (3)
  - Cardiac failure acute [None]
  - Atrial flutter [None]
  - Heart rate increased [None]
